FAERS Safety Report 12113012 (Version 1)
Quarter: 2016Q1

REPORT INFORMATION
  Report Type: Other
  Country: US (occurrence: US)
  Receive Date: 20160225
  Receipt Date: 20160225
  Transmission Date: 20160526
  Serious: No
  Sender: FDA-Public Use
  Company Number: US-ACORDA-ACO_116495_2015

PATIENT
  Sex: Female

DRUGS (1)
  1. AMPYRA [Suspect]
     Active Substance: DALFAMPRIDINE
     Indication: MULTIPLE SCLEROSIS
     Dosage: 10 MG, BID
     Route: 065

REACTIONS (10)
  - Upper motor neurone lesion [Unknown]
  - Dyskinesia [Unknown]
  - Gait spastic [Unknown]
  - Muscular weakness [Unknown]
  - Joint stiffness [Unknown]
  - Fatigue [Unknown]
  - Arthralgia [Unknown]
  - Walking aid user [Unknown]
  - Muscle spasticity [Unknown]
  - Cerebellar syndrome [Unknown]
